FAERS Safety Report 15599353 (Version 2)
Quarter: 2018Q4

REPORT INFORMATION
  Report Type: Spontaneous
  Country: SE (occurrence: SE)
  Receive Date: 20181108
  Receipt Date: 20181109
  Transmission Date: 20190205
  Serious: Yes (Hospitalization, Other)
  Sender: FDA-Public Use
  Company Number: SE-PFIZER INC-2011108532

PATIENT
  Age: 62 Year
  Sex: Male

DRUGS (9)
  1. AMIAS [Suspect]
     Active Substance: CANDESARTAN CILEXETIL
     Indication: CARDIAC FAILURE
     Dosage: 8 MG, 1X/DAY
     Route: 048
     Dates: start: 2008, end: 201009
  2. METFORMIN HYDROCHLORIDE. [Concomitant]
     Active Substance: METFORMIN HYDROCHLORIDE
     Dosage: UNK
  3. ALTACE [Suspect]
     Active Substance: RAMIPRIL
     Indication: CARDIAC FAILURE
     Dosage: 10 MG, 1X/DAY
     Route: 048
     Dates: start: 2008, end: 2009
  4. METOPROLOL TARTRATE. [Concomitant]
     Active Substance: METOPROLOL TARTRATE
     Dosage: UNK
  5. ATACAND [Suspect]
     Active Substance: CANDESARTAN CILEXETIL
     Indication: CARDIAC FAILURE
     Dosage: 8 MG, DAILY
     Route: 048
     Dates: start: 2008, end: 201009
  6. LIPITOR [Concomitant]
     Active Substance: ATORVASTATIN CALCIUM
     Dosage: 10 MG, UNK
  7. DIGOXIN. [Concomitant]
     Active Substance: DIGOXIN
     Dosage: 0.13 MG, UNK
  8. MINDIAB [Concomitant]
     Active Substance: GLIPIZIDE
     Dosage: 2.5 MG, UNK
  9. PLAVIX [Concomitant]
     Active Substance: CLOPIDOGREL BISULFATE
     Dosage: 75 MG, UNK

REACTIONS (7)
  - Oedema [Recovered/Resolved]
  - Urticaria [Recovered/Resolved]
  - Angioedema [Recovered/Resolved]
  - Syncope [Recovered/Resolved]
  - Periorbital oedema [Recovered/Resolved]
  - Fatigue [Recovered/Resolved]
  - Discomfort [Recovered/Resolved]

NARRATIVE: CASE EVENT DATE: 200801
